FAERS Safety Report 4906071-8 (Version None)
Quarter: 2006Q1

REPORT INFORMATION
  Report Type: 
  Country: None (occurrence: None)
  Receive Date: 20060207
  Receipt Date: 20060207
  Transmission Date: 20060701
  Serious: Yes (Hospitalization)
  Sender: FDA-Public Use
  Company Number: None

PATIENT
  Age: 72 Year
  Sex: Male
  Weight: 134.3 kg

DRUGS (9)
  1. IBUPROFEN [Suspect]
     Indication: PAIN
     Dosage: 600 MG Q 8 H PRN
     Dates: start: 20041229, end: 20051024
  2. ENALAPRIL MALEATE [Concomitant]
  3. FELODIPINE [Concomitant]
  4. METOPROLOL TARTRATE [Concomitant]
  5. SILDENAFIL CITRATE [Concomitant]
  6. THIAMINE HCL [Concomitant]
  7. HYDROCHLOROTHIAZIDE [Concomitant]
  8. HYDROCODONE 5/ACETAMINOPHEN [Concomitant]
  9. SIMVASTATIN [Concomitant]

REACTIONS (2)
  - ANAEMIA [None]
  - FAECES DISCOLOURED [None]
